FAERS Safety Report 4869996-8 (Version None)
Quarter: 2005Q4

REPORT INFORMATION
  Report Type: 
  Country: None (occurrence: None)
  Receive Date: 20051223
  Receipt Date: 20051216
  Transmission Date: 20060501
  Serious: Yes (Other)
  Sender: FDA-Public Use
  Company Number: 200514744BCC

PATIENT
  Age: 69 Year
  Sex: Male
  Weight: 131.5431 kg

DRUGS (11)
  1. ALEVE [Suspect]
     Indication: PAIN IN EXTREMITY
     Dosage: 400 MG, BID, ORAL
     Route: 048
     Dates: start: 20051114, end: 20051124
  2. INDAPAMIDE [Concomitant]
  3. PINDOLOL [Concomitant]
  4. ALTACE [Concomitant]
  5. NEXIUM [Concomitant]
  6. LEVOTHYROXINE SODIUM [Concomitant]
  7. NATURE MADE VITAMIN C [Concomitant]
  8. NATURE MADE MULTICOMPLETE WITH LUTEIN [Concomitant]
  9. MASON FOLIC ACID [Concomitant]
  10. CVS ASPIRIN [Concomitant]
  11. BIOFLAVONOIDS COMPLX [Concomitant]

REACTIONS (2)
  - BLOOD PRESSURE INCREASED [None]
  - DIZZINESS [None]
